FAERS Safety Report 24332873 (Version 1)
Quarter: 2024Q3

REPORT INFORMATION
  Report Type: Spontaneous
  Country: GB (occurrence: GB)
  Receive Date: 20240918
  Receipt Date: 20240918
  Transmission Date: 20241017
  Serious: Yes (Other)
  Sender: MYLAN
  Company Number: None

PATIENT
  Sex: Female

DRUGS (5)
  1. FEXOFENADINE [Suspect]
     Active Substance: FEXOFENADINE HYDROCHLORIDE
     Indication: Solar urticaria
     Dosage: 180 MILLIGRAM, BID (TWICE A DAY, 6 DAYS)
     Route: 065
  2. FEXOFENADINE [Suspect]
     Active Substance: FEXOFENADINE HYDROCHLORIDE
     Dosage: UNK
     Route: 065
  3. FAMOTIDINE [Suspect]
     Active Substance: FAMOTIDINE
     Indication: Solar urticaria
     Dosage: 40 MILLIGRAM, PM (40MG ON FOR 6 DAYS)
     Route: 065
  4. MONTELUKAST [Concomitant]
     Active Substance: MONTELUKAST SODIUM
     Indication: Solar urticaria
     Dosage: UNK
     Route: 065
  5. Nytol herbal [Concomitant]
     Indication: Adverse drug reaction
     Dosage: UNK, PRN
     Route: 065

REACTIONS (3)
  - Hypertension [Recovered/Resolved]
  - Heart rate irregular [Recovered/Resolved]
  - Dizziness [Recovered/Resolved]
